FAERS Safety Report 5744932-0 (Version None)
Quarter: 2008Q2

REPORT INFORMATION
  Report Type: 
  Country: None (occurrence: None)
  Receive Date: 20080521
  Receipt Date: 20080512
  Transmission Date: 20081010
  Serious: Yes (Other)
  Sender: FDA-Public Use
  Company Number: GB-RANBAXY-2006RR-04967

PATIENT

DRUGS (3)
  1. IBUPROFEN TABLETS [Suspect]
  2. PIROXICAM [Suspect]
     Indication: CHEST PAIN
     Route: 048
  3. PIROXICAM [Suspect]
     Indication: ARTHRALGIA

REACTIONS (2)
  - EYE PAIN [None]
  - VISION BLURRED [None]
